FAERS Safety Report 5681012-7 (Version None)
Quarter: 2008Q1

REPORT INFORMATION
  Report Type: 
  Country: None (occurrence: None)
  Receive Date: 20080326
  Receipt Date: 20080314
  Transmission Date: 20080703
  Serious: Yes (Life-Threatening)
  Sender: FDA-Public Use
  Company Number: JP-PFIZER INC-2008025007

PATIENT
  Age: 65 Year
  Sex: Female

DRUGS (1)
  1. HALCION [Suspect]
     Route: 048

REACTIONS (3)
  - C-REACTIVE PROTEIN INCREASED [None]
  - PYREXIA [None]
  - SUICIDE ATTEMPT [None]
